FAERS Safety Report 8082730-6 (Version None)
Quarter: 2012Q1

REPORT INFORMATION
  Report Type: 
  Country: None (occurrence: None)
  Receive Date: 20120127
  Receipt Date: 20110204
  Transmission Date: 20120608
  Serious: No
  Sender: FDA-Public Use
  Company Number: US-ABBOTT-11P-163-0703805-00

PATIENT
  Sex: Male
  Weight: 113.5 kg

DRUGS (5)
  1. MOBIC [Concomitant]
     Indication: RHEUMATOID ARTHRITIS
  2. UNKNOWN PAIN MEDICATION [Concomitant]
     Indication: RHEUMATOID ARTHRITIS
  3. HUMIRA [Suspect]
     Indication: RHEUMATOID ARTHRITIS
     Dates: start: 20101101
  4. FOLIC ACID [Concomitant]
     Indication: RHEUMATOID ARTHRITIS
  5. METHOTREXATE [Concomitant]
     Indication: RHEUMATOID ARTHRITIS

REACTIONS (8)
  - OEDEMA PERIPHERAL [None]
  - BLOOD PRESSURE INCREASED [None]
  - COUGH [None]
  - DIARRHOEA [None]
  - ORAL HERPES [None]
  - OROPHARYNGEAL PAIN [None]
  - HEART RATE INCREASED [None]
  - THROAT IRRITATION [None]
